FAERS Safety Report 14152203 (Version 1)
Quarter: 2017Q4

REPORT INFORMATION
  Report Type: Other
  Country: US (occurrence: US)
  Receive Date: 20171102
  Receipt Date: 20171102
  Transmission Date: 20180321
  Serious: Yes (Death, Hospitalization)
  Sender: FDA-Public Use
  Company Number: US-VELOXIS PHARMACEUTICALS-2033044

PATIENT
  Age: 48 Year
  Sex: Female

DRUGS (7)
  1. COTRIMOXAZOLE [Concomitant]
     Active Substance: SULFAMETHOXAZOLE\TRIMETHOPRIM
  2. MYCOPHENOLATE MOFETIL. [Suspect]
     Active Substance: MYCOPHENOLATE MOFETIL
  3. ENVARSUS XR [Suspect]
     Active Substance: TACROLIMUS
     Indication: IMMUNOSUPPRESSANT DRUG THERAPY
  4. METHYLPREDNISOLONE. [Suspect]
     Active Substance: METHYLPREDNISOLONE
  5. BASILIXIMAB [Suspect]
     Active Substance: BASILIXIMAB
  6. FLUCONAZOLE. [Concomitant]
     Active Substance: FLUCONAZOLE
  7. GANCICLOVIR. [Concomitant]
     Active Substance: GANCICLOVIR

REACTIONS (6)
  - Multiple organ dysfunction syndrome [Fatal]
  - Enterococcal bacteraemia [Not Recovered/Not Resolved]
  - Neuropathy peripheral [Not Recovered/Not Resolved]
  - Mucormycosis [Fatal]
  - Intentional product use issue [Unknown]
  - Gastrointestinal necrosis [Not Recovered/Not Resolved]
